FAERS Safety Report 15560678 (Version 2)
Quarter: 2019Q2

REPORT INFORMATION
  Report Type: Spontaneous
  Country: US (occurrence: US)
  Receive Date: 20181029
  Receipt Date: 20190613
  Transmission Date: 20190711
  Serious: No
  Sender: FDA-Public Use
  Company Number: US-PFIZER INC-2018423232

PATIENT
  Age: 88 Year
  Sex: Male
  Weight: 87.75 kg

DRUGS (19)
  1. GABAPENTIN. [Concomitant]
     Active Substance: GABAPENTIN
     Indication: NEURALGIA
     Dosage: 300 MG, 3X/DAY
     Route: 048
     Dates: start: 2012
  2. VALTREX [Concomitant]
     Active Substance: VALACYCLOVIR HYDROCHLORIDE
     Indication: ANTIVIRAL TREATMENT
     Dosage: 1000 MG, 2X/DAY (2-2X A DAY)
  3. LYRICA [Suspect]
     Active Substance: PREGABALIN
     Indication: HERPES ZOSTER
     Dosage: 50 MG, 2X/DAY
     Route: 048
     Dates: start: 20181006, end: 20181006
  4. LYRICA [Suspect]
     Active Substance: PREGABALIN
     Indication: NEURALGIA
     Dosage: 50 MG, 1X/DAY
     Route: 048
     Dates: start: 20181005, end: 20181005
  5. OFLOXACIN. [Concomitant]
     Active Substance: OFLOXACIN
     Dosage: UNK, DAILY (0.3 TO 1 DROP EVERY DAY R EYE)
     Route: 047
  6. VALACYCLOVIR HCL [Concomitant]
     Active Substance: VALACYCLOVIR HYDROCHLORIDE
     Indication: ANTIVIRAL TREATMENT
     Dosage: 2 500MG TABLETS, 3X/DAY
  7. NEOMYCIN. [Concomitant]
     Active Substance: NEOMYCIN
     Dosage: UNK (AM+PM 3.5)
  8. ARTIFICIAL TEARS [HYPROMELLOSE] [Concomitant]
     Dosage: UNK (4-6 TIMES A DAY OR MORE 1.4 TO EYE WASH )
  9. SOMATOSTATIN [Concomitant]
     Active Substance: SOMATOSTATIN
     Dosage: 40 MG, 1X/DAY (1 CALLED IN AM 40 MG)
  10. AZATHIOPRINE SODIUM. [Concomitant]
     Active Substance: AZATHIOPRINE SODIUM
     Dosage: 2 DF, 1X/DAY
     Dates: start: 2010
  11. BRIMONIDINE [Concomitant]
     Active Substance: BRIMONIDINE TARTRATE
     Indication: ASTHENOPIA
     Dosage: 2 GTT, 2X/DAY (BOTH EYES)
     Route: 047
  12. GABAPENTIN. [Concomitant]
     Active Substance: GABAPENTIN
     Indication: PAIN
     Dosage: 100 MG, 3X/DAY
  13. ECOTRIN [Concomitant]
     Active Substance: ASPIRIN
     Dosage: UNK (1 DAY LOW DOSE)
  14. LYRICA [Suspect]
     Active Substance: PREGABALIN
     Indication: NERVE INJURY
     Dosage: 50 MG, 3X/DAY
     Route: 048
     Dates: start: 20181007, end: 20181011
  15. OFLOXACIN. [Concomitant]
     Active Substance: OFLOXACIN
     Indication: BACTERIAL INFECTION
     Dosage: 1 GTT, UNK (ONE DROP SIX TIMES A DAY IN THE RIGHT EYE)
     Route: 047
  16. DOXYCYCLINE HYCLATE. [Concomitant]
     Active Substance: DOXYCYCLINE HYCLATE
     Indication: BACTERIAL INFECTION
     Dosage: 100 MG, DAILY
     Route: 048
  17. PREDNISOLONE. [Concomitant]
     Active Substance: PREDNISOLONE
     Indication: BACTERIAL INFECTION
     Dosage: 1 GTT, 4X/DAY (ONE DROP FOUR TIMES A EVERY DAY INTO RIGHT EYE)
     Route: 047
  18. BRIMONIDINE TARTRATE. [Concomitant]
     Active Substance: BRIMONIDINE TARTRATE
     Indication: ASTHENOPIA
     Dosage: 2 GTT, 2X/DAY (0.15 2 DROPS 2 TIMES DAY BOTH EYES (LOWER PRESSURE))
     Route: 047
  19. CENTRUM SILVER +50 [Concomitant]
     Dosage: UNK

REACTIONS (13)
  - Fatigue [Recovering/Resolving]
  - Balance disorder [Recovering/Resolving]
  - Gait disturbance [Recovering/Resolving]
  - Drug hypersensitivity [Unknown]
  - Hyperhidrosis [Recovered/Resolved]
  - Rash [Recovering/Resolving]
  - Feeling cold [Recovered/Resolved]
  - Eye pain [Unknown]
  - Speech disorder [Unknown]
  - Tremor [Recovered/Resolved]
  - Nausea [Recovering/Resolving]
  - Peripheral swelling [Recovering/Resolving]
  - Decreased appetite [Recovering/Resolving]

NARRATIVE: CASE EVENT DATE: 20181007
